FAERS Safety Report 4641641-6 (Version None)
Quarter: 2005Q2

REPORT INFORMATION
  Report Type: 
  Country: None (occurrence: None)
  Receive Date: 20050420
  Receipt Date: 20050331
  Transmission Date: 20051028
  Serious: Yes (Other)
  Sender: FDA-Public Use
  Company Number: B0376389A

PATIENT
  Age: 32 Year
  Sex: Female

DRUGS (2)
  1. PAXIL [Suspect]
     Indication: DEPRESSION
  2. INSULIN [Concomitant]

REACTIONS (2)
  - HEPATOTOXICITY [None]
  - RENAL PAIN [None]
